FAERS Safety Report 8990477 (Version 2)
Quarter: 2013Q1

REPORT INFORMATION
  Report Type: Report from Study
  Country: US (occurrence: US)
  Receive Date: 20121228
  Receipt Date: 20130102
  Transmission Date: 20140127
  Serious: Yes (Other)
  Sender: FDA-Public Use
  Company Number: US-PFIZER INC-2012323590

PATIENT
  Age: 28 Year
  Sex: Female
  Weight: 73.5 kg

DRUGS (8)
  1. AXITINIB [Suspect]
     Indication: COLON CANCER
     Dosage: 7 MG, 2X/DAY
     Route: 048
     Dates: start: 20121115
  2. HYDROMORPHONE [Concomitant]
     Indication: BACK PAIN
     Dosage: 4 MG, Q 4HRS PRN
     Route: 048
     Dates: start: 201206
  3. OXYCODONE [Concomitant]
     Indication: BACK PAIN
     Dosage: 5 MG, Q 4HRS PRN
     Route: 048
     Dates: start: 201206
  4. MIRALAX [Concomitant]
     Indication: CONSTIPATION
     Dosage: 17 G, AS NEEDED
     Route: 048
     Dates: start: 201101
  5. NORETHINDRONE [Concomitant]
     Indication: ORAL CONTRACEPTION
     Dosage: 1 TABLET, DAILY
     Route: 048
     Dates: end: 20121110
  6. IBUPROFEN [Concomitant]
     Indication: HEADACHE
     Dosage: 1-2 TABLETS PRN
     Route: 048
     Dates: start: 2000
  7. XANAX [Concomitant]
     Indication: SLEEP DISORDER
     Dosage: 0.5 MG, AS NEEDED
     Route: 048
     Dates: start: 20121203
  8. OXYCONTIN [Concomitant]
     Indication: BACK PAIN
     Dosage: 20 MG, Q 12HRS
     Route: 048
     Dates: start: 20121206

REACTIONS (1)
  - Neutrophil count decreased [Recovered/Resolved]
